FAERS Safety Report 20751765 (Version 7)
Quarter: 2022Q3

REPORT INFORMATION
  Report Type: Spontaneous
  Country: US (occurrence: US)
  Receive Date: 20220426
  Receipt Date: 20220712
  Transmission Date: 20221027
  Serious: Yes (Other)
  Sender: FDA-Public Use
  Company Number: US-PFIZER INC-202200349414

PATIENT
  Age: 54 Year
  Sex: Female

DRUGS (1)
  1. IBRANCE [Suspect]
     Active Substance: PALBOCICLIB
     Indication: Metastatic carcinoid tumour
     Dosage: 125 MG, ALTERNATE DAY (EVERY OTHER DAY)
     Dates: start: 20220127

REACTIONS (17)
  - Neuropathy peripheral [Not Recovered/Not Resolved]
  - Off label use [Unknown]
  - Nausea [Not Recovered/Not Resolved]
  - Dysgeusia [Unknown]
  - Arthralgia [Unknown]
  - Taste disorder [Unknown]
  - Stomatitis [Unknown]
  - Fatigue [Unknown]
  - Hypoaesthesia [Unknown]
  - Alopecia [Unknown]
  - Oral pain [Unknown]
  - White blood cell count decreased [Unknown]
  - Pain in extremity [Unknown]
  - Bone pain [Unknown]
  - Herpes zoster [Unknown]
  - Back pain [Unknown]
  - Pain [Unknown]

NARRATIVE: CASE EVENT DATE: 20220101
